FAERS Safety Report 8017064-9 (Version None)
Quarter: 2012Q1

REPORT INFORMATION
  Report Type: 
  Country: None (occurrence: None)
  Receive Date: 20120102
  Receipt Date: 20111229
  Transmission Date: 20120608
  Serious: Yes (Death)
  Sender: FDA-Public Use
  Company Number: PHEH2011US012689

PATIENT
  Sex: Male

DRUGS (13)
  1. OMEGA [Concomitant]
     Dosage: 3 DF, UNK
  2. CENTRUM [Concomitant]
     Dosage: UNK
  3. AFINITOR [Suspect]
     Dosage: 10 MG, DAILY
     Route: 048
  4. FOLIC ACID [Concomitant]
     Dosage: 1 DF, UNK
  5. PROTONIX [Concomitant]
     Dosage: 40 MG, UNK
  6. DIOVAN HCT [Concomitant]
     Dosage: 1 DF, UNK
  7. MEGESTROL ACETATE [Concomitant]
     Dosage: 20 MG, UNK
  8. TRAMADOL HCL [Concomitant]
     Dosage: UNK
  9. AMITRIPTYLINE HCL [Concomitant]
     Dosage: 25 MG, UNK
  10. XOPENEX [Concomitant]
     Dosage: UNK
  11. GEMFIBROZIL [Concomitant]
     Dosage: 600 MG, UNK
  12. ASACOL [Concomitant]
     Dosage: 400 MG, UNK
  13. SPIRIVA [Concomitant]
     Dosage: UNK

REACTIONS (1)
  - DEATH [None]
